FAERS Safety Report 11821608 (Version 1)
Quarter: 2015Q4

REPORT INFORMATION
  Report Type: Spontaneous
  Country: US (occurrence: US)
  Receive Date: 20151210
  Receipt Date: 20151210
  Transmission Date: 20160305
  Serious: No
  Sender: FDA-Public Use
  Company Number: US-BAYER-2015-484680

PATIENT
  Sex: Female

DRUGS (1)
  1. ALEVE [Suspect]
     Active Substance: NAPROXEN SODIUM
     Dosage: TOOK 3, TWO HOURS LATER, TAKE 2, THEN LATER TOOK 2 MORE.TWO HOURS LATER, TOOK 3 MORE

REACTIONS (1)
  - Product use issue [None]
